FAERS Safety Report 4389069-0 (Version None)
Quarter: 2004Q2

REPORT INFORMATION
  Report Type: 
  Country: None (occurrence: None)
  Receive Date: 20040624
  Receipt Date: 20040615
  Transmission Date: 20050107
  Serious: Yes (Hospitalization, Other)
  Sender: FDA-Public Use
  Company Number: 2004219022US

PATIENT
  Age: 73 Year
  Sex: Female

DRUGS (1)
  1. DETROL LA [Suspect]
     Dates: start: 20040401

REACTIONS (6)
  - ABDOMINAL DISTENSION [None]
  - CHEST DISCOMFORT [None]
  - DEHYDRATION [None]
  - DYSPNOEA [None]
  - DYSURIA [None]
  - OLIGURIA [None]
